FAERS Safety Report 23305524 (Version 1)
Quarter: 2023Q4

REPORT INFORMATION
  Report Type: Report from Study
  Country: US (occurrence: US)
  Receive Date: 20231218
  Receipt Date: 20231218
  Transmission Date: 20240110
  Serious: Yes (Death, Other)
  Sender: FDA-Public Use
  Company Number: US-002147023-NVSC2021US287479

PATIENT
  Sex: Female
  Weight: 68.027 kg

DRUGS (5)
  1. TREPROSTINIL [Suspect]
     Active Substance: TREPROSTINIL
     Indication: Pulmonary arterial hypertension
     Dosage: 15 NG/KG
     Route: 058
     Dates: start: 20210726
  2. TREPROSTINIL [Suspect]
     Active Substance: TREPROSTINIL
     Dosage: 15 NG/KG/MIN, CONT STRENGTH(2.5 MG/ML)
     Route: 058
     Dates: start: 20210726
  3. DILTIAZEM [Concomitant]
     Active Substance: DILTIAZEM
     Indication: Product used for unknown indication
     Dosage: UNK
     Route: 065
  4. LETAIRIS [Concomitant]
     Active Substance: AMBRISENTAN
     Indication: Product used for unknown indication
     Dosage: UNK
     Route: 065
  5. TADALAFIL [Concomitant]
     Active Substance: TADALAFIL
     Indication: Product used for unknown indication
     Dosage: UNK
     Route: 065

REACTIONS (5)
  - Death [Fatal]
  - Upper respiratory tract infection [Unknown]
  - Diarrhoea [Unknown]
  - Cough [Unknown]
  - Product availability issue [Unknown]
